FAERS Safety Report 7078180-1 (Version None)
Quarter: 2010Q4

REPORT INFORMATION
  Report Type: 
  Country: None (occurrence: None)
  Receive Date: 20101101
  Receipt Date: 20101101
  Transmission Date: 20110411
  Serious: Yes (Hospitalization)
  Sender: FDA-Public Use
  Company Number: None

PATIENT
  Sex: Male
  Weight: 62.7 kg

DRUGS (1)
  1. INVANZ [Suspect]
     Indication: OSTEOMYELITIS
     Dosage: INVANZ 1GM EVERY 24 HOURS INTRAVENOUS
     Route: 042
     Dates: start: 20100929, end: 20101018

REACTIONS (2)
  - CONVULSION [None]
  - LOSS OF CONSCIOUSNESS [None]
